FAERS Safety Report 8485402-9 (Version None)
Quarter: 2012Q3

REPORT INFORMATION
  Report Type: 
  Country: None (occurrence: None)
  Receive Date: 20120703
  Receipt Date: 20120628
  Transmission Date: 20120928
  Serious: Yes (Disabling)
  Sender: FDA-Public Use
  Company Number: PHHY2012NL043511

PATIENT
  Sex: Male
  Weight: 77.4 kg

DRUGS (2)
  1. TEGRETOL [Suspect]
     Dosage: 3 DF, BID
     Route: 048
     Dates: start: 19710101
  2. PHENOBARBITAL TAB [Concomitant]
     Dosage: 1 DF, QD
     Route: 048
     Dates: start: 19500101

REACTIONS (3)
  - SALIVARY HYPERSECRETION [None]
  - DYSPHAGIA [None]
  - APTYALISM [None]
